FAERS Safety Report 19946295 (Version 1)
Quarter: 2021Q4

REPORT INFORMATION
  Report Type: Spontaneous
  Country: GB (occurrence: GB)
  Receive Date: 20211013
  Receipt Date: 20211013
  Transmission Date: 20220304
  Serious: Yes (Death)
  Sender: FDA-Public Use
  Company Number: GB-ABBVIE-21K-167-4117554-00

PATIENT

DRUGS (1)
  1. VENETOCLAX [Suspect]
     Active Substance: VENETOCLAX
     Indication: Acute lymphocytic leukaemia
     Route: 048

REACTIONS (2)
  - Fungal infection [Fatal]
  - Off label use [Unknown]
